FAERS Safety Report 8273111-0 (Version None)
Quarter: 2012Q2

REPORT INFORMATION
  Report Type: 
  Country: None (occurrence: None)
  Receive Date: 20120411
  Receipt Date: 20120403
  Transmission Date: 20120825
  Serious: Yes (Other)
  Sender: FDA-Public Use
  Company Number: GB-JNJFOC-20120403307

PATIENT

DRUGS (32)
  1. VINCRISTINE [Suspect]
     Route: 042
  2. CHLORAMBUCIL [Suspect]
     Route: 048
  3. VINBLASTINE SULFATE [Suspect]
     Indication: HODGKIN'S DISEASE
     Route: 042
  4. VINBLASTINE SULFATE [Suspect]
     Route: 042
  5. DOXORUBICIN HCL [Suspect]
     Route: 042
  6. DACARBAZINE [Suspect]
     Route: 042
  7. CHLORAMBUCIL [Suspect]
     Route: 048
  8. VINBLASTINE SULFATE [Suspect]
     Route: 042
  9. PROCARBAZINE HYDROCHLORIDE [Suspect]
     Route: 048
  10. PREDNISOLONE [Suspect]
     Route: 048
  11. BLEOMYCIN SULFATE [Suspect]
     Indication: HODGKIN'S DISEASE
     Route: 042
  12. BLEOMYCIN SULFATE [Suspect]
     Route: 042
  13. VINCRISTINE [Suspect]
     Route: 042
  14. PROCARBAZINE HYDROCHLORIDE [Suspect]
     Route: 048
  15. DOXORUBICIN HCL [Suspect]
     Route: 042
  16. DOXORUBICIN HCL [Suspect]
     Route: 042
  17. BLEOMYCIN SULFATE [Suspect]
     Route: 042
  18. DACARBAZINE [Suspect]
     Route: 042
  19. CHLORAMBUCIL [Suspect]
     Route: 048
  20. PROCARBAZINE HYDROCHLORIDE [Suspect]
     Route: 048
  21. DOXORUBICIN HCL [Suspect]
     Indication: HODGKIN'S DISEASE
     Route: 042
  22. DACARBAZINE [Suspect]
     Indication: HODGKIN'S DISEASE
     Route: 042
  23. DACARBAZINE [Suspect]
     Route: 042
  24. VINBLASTINE SULFATE [Suspect]
     Route: 042
  25. VINCRISTINE [Suspect]
     Indication: HODGKIN'S DISEASE
     Route: 042
  26. CHLORAMBUCIL [Suspect]
     Indication: HODGKIN'S DISEASE
     Route: 048
  27. PREDNISOLONE [Suspect]
     Route: 048
  28. BLEOMYCIN SULFATE [Suspect]
     Route: 042
  29. PREDNISOLONE [Suspect]
     Indication: HODGKIN'S DISEASE
     Route: 048
  30. PREDNISOLONE [Suspect]
     Route: 048
  31. VINCRISTINE [Suspect]
     Route: 042
  32. PROCARBAZINE HYDROCHLORIDE [Suspect]
     Indication: HODGKIN'S DISEASE
     Route: 048

REACTIONS (1)
  - MENTAL DISORDER [None]
